FAERS Safety Report 15005846 (Version 2)
Quarter: 2018Q3

REPORT INFORMATION
  Report Type: Report from Study
  Country: None (occurrence: GB)
  Receive Date: 20180613
  Receipt Date: 20180821
  Transmission Date: 20181010
  Serious: Yes (Hospitalization, Other)
  Sender: FDA-Public Use
  Company Number: GB-ABBVIE-18K-167-2386355-00

PATIENT
  Sex: Female

DRUGS (1)
  1. HUMIRA [Suspect]
     Active Substance: ADALIMUMAB
     Indication: RHEUMATOID ARTHRITIS
     Route: 058

REACTIONS (9)
  - Phobia [Unknown]
  - Back disorder [Unknown]
  - Suicidal ideation [Unknown]
  - Depression [Unknown]
  - Crying [Unknown]
  - Emotional distress [Unknown]
  - Hospitalisation [Unknown]
  - Perinatal depression [Unknown]
  - Anxiety [Unknown]
